FAERS Safety Report 6522916-2 (Version None)
Quarter: 2009Q4

REPORT INFORMATION
  Report Type: 
  Country: None (occurrence: None)
  Receive Date: 20091230
  Receipt Date: 20091223
  Transmission Date: 20100525
  Serious: Yes (Death, Life-Threatening, Hospitalization, Other)
  Sender: FDA-Public Use
  Company Number: US-BAXTER-2009BH019827

PATIENT
  Sex: Male

DRUGS (3)
  1. HEPARIN SODIUM INJECTION [Suspect]
     Indication: HEART TRANSPLANT
     Route: 058
     Dates: start: 20071101
  2. HEPARIN SODIUM INJECTION [Suspect]
     Route: 042
     Dates: start: 20071101
  3. HEPARIN SODIUM INJECTION [Suspect]
     Route: 065
     Dates: start: 20071212, end: 20071212

REACTIONS (10)
  - DEATH [None]
  - GENERAL PHYSICAL HEALTH DETERIORATION [None]
  - HYPOTENSION [None]
  - NAUSEA [None]
  - RENAL FAILURE ACUTE [None]
  - RESPIRATORY FAILURE [None]
  - SEPSIS [None]
  - SHOCK [None]
  - THROMBOCYTOPENIA [None]
  - VOMITING [None]
